FAERS Safety Report 17454505 (Version 1)
Quarter: 2020Q1

REPORT INFORMATION
  Report Type: Spontaneous
  Country: US (occurrence: US)
  Receive Date: 20200225
  Receipt Date: 20200225
  Transmission Date: 20200409
  Serious: Yes (Other)
  Sender: FDA-Public Use
  Company Number: US-CIPLA LTD.-2020US01212

PATIENT

DRUGS (4)
  1. TRENBOLONE [Suspect]
     Active Substance: TRENBOLONE
     Indication: MEDICAL ANABOLIC THERAPY
     Dosage: UNK
     Route: 065
  2. METHASTERONE. [Suspect]
     Active Substance: METHASTERONE
     Indication: MEDICAL ANABOLIC THERAPY
     Dosage: UNK
     Route: 065
  3. TESTOSTERONE. [Suspect]
     Active Substance: TESTOSTERONE
     Indication: MEDICAL ANABOLIC THERAPY
     Dosage: UNK
     Route: 065
  4. OXANDROLONE. [Suspect]
     Active Substance: OXANDROLONE
     Indication: MEDICAL ANABOLIC THERAPY
     Dosage: UNK
     Route: 065

REACTIONS (2)
  - Drug-induced liver injury [Recovering/Resolving]
  - Hepatitis cholestatic [Recovering/Resolving]
